FAERS Safety Report 6989819-0 (Version None)
Quarter: 2010Q3

REPORT INFORMATION
  Report Type: 
  Country: None (occurrence: None)
  Receive Date: 20100916
  Receipt Date: 20100322
  Transmission Date: 20110219
  Serious: Yes (Other)
  Sender: FDA-Public Use
  Company Number: SE-PFIZER INC-2009303319

PATIENT
  Sex: Female

DRUGS (3)
  1. LYRICA [Suspect]
     Indication: MYOPATHY
     Dosage: UNK
     Dates: start: 20080101, end: 20090101
  2. LYRICA [Suspect]
     Indication: PAIN
  3. LYRICA [Suspect]
     Indication: ANXIETY

REACTIONS (8)
  - ARTHRALGIA [None]
  - FATIGUE [None]
  - FLUSHING [None]
  - MUSCLE TWITCHING [None]
  - PAIN IN EXTREMITY [None]
  - PARAESTHESIA [None]
  - VISION BLURRED [None]
  - WITHDRAWAL SYNDROME [None]
